FAERS Safety Report 9463016 (Version 2)
Quarter: 2013Q3

REPORT INFORMATION
  Report Type: Spontaneous
  Country: US (occurrence: US)
  Receive Date: 20130816
  Receipt Date: 20130911
  Transmission Date: 20140515
  Serious: Yes (Hospitalization)
  Sender: FDA-Public Use
  Company Number: GXBR2013US001535

PATIENT
  Sex: Female

DRUGS (2)
  1. MIDODRINE HYDROCHLORIDE [Suspect]
     Indication: AUTONOMIC FAILURE SYNDROME
     Dosage: 5 MG, Q4H, AS NEEDED
     Route: 048
  2. MIDODRINE HYDROCHLORIDE [Suspect]
     Dosage: 5 MG, PRN, TYPICALLY 4-5 DOSES IN 24 HOURS
     Dates: start: 2010

REACTIONS (5)
  - Pneumonia [Not Recovered/Not Resolved]
  - Pneumothorax [Not Recovered/Not Resolved]
  - Inappropriate schedule of drug administration [Unknown]
  - Blood pressure decreased [Not Recovered/Not Resolved]
  - Drug ineffective [Not Recovered/Not Resolved]
